FAERS Safety Report 10725843 (Version 1)
Quarter: 2015Q1

REPORT INFORMATION
  Report Type: Spontaneous
  Country: US (occurrence: None)
  Receive Date: 20150116
  Receipt Date: 20150116
  Transmission Date: 20150721
  Serious: Yes (Other)
  Sender: FDA-Public Use
  Company Number: None

PATIENT
  Age: 29 Year
  Sex: Female
  Weight: 78.93 kg

DRUGS (1)
  1. LEVOTHYROXINE [Suspect]
     Active Substance: LEVOTHYROXINE
     Indication: POST PROCEDURAL HYPOTHYROIDISM
     Route: 048
     Dates: start: 200712, end: 200701

REACTIONS (4)
  - Vomiting [None]
  - Impaired work ability [None]
  - Migraine [None]
  - Nausea [None]

NARRATIVE: CASE EVENT DATE: 20070108
